FAERS Safety Report 8272373-3 (Version None)
Quarter: 2012Q2

REPORT INFORMATION
  Report Type: 
  Country: None (occurrence: None)
  Receive Date: 20120410
  Receipt Date: 20120402
  Transmission Date: 20120825
  Serious: Yes (Hospitalization)
  Sender: FDA-Public Use
  Company Number: FR-PFIZER INC-2012087202

PATIENT
  Age: 65 Year
  Sex: Female

DRUGS (7)
  1. CRESTOR [Concomitant]
     Dosage: 5 MG, 1X/DAY
     Route: 048
  2. FUROSEMIDE [Concomitant]
     Dosage: 20 MG, 1X/DAY
     Route: 048
  3. GLUCOPHAGE [Concomitant]
     Dosage: 500 MG, 2X/DAY
     Route: 048
  4. CELECTOL [Concomitant]
     Dosage: 200 MG, 1X/DAY
     Route: 048
  5. INSULIN [Concomitant]
  6. RAMIPRIL [Suspect]
     Dosage: 10 MG, 1X/DAY
     Route: 048
  7. CLONAZEPAM [Concomitant]
     Dosage: 2.5 MG/ML, 25 DROPS ONCE DAILY
     Route: 048

REACTIONS (2)
  - ORTHOSTATIC HYPOTENSION [None]
  - FALL [None]
